FAERS Safety Report 7584086-1 (Version None)
Quarter: 2011Q2

REPORT INFORMATION
  Report Type: 
  Country: None (occurrence: None)
  Receive Date: 20110630
  Receipt Date: 20110622
  Transmission Date: 20111010
  Serious: Yes (Death, Hospitalization, Other)
  Sender: FDA-Public Use
  Company Number: JP-MERCK-1106USA00553

PATIENT
  Age: 79 Year
  Sex: Male

DRUGS (11)
  1. COLCHICINE [Suspect]
     Indication: GOUT
     Route: 048
     Dates: start: 20110224, end: 20110302
  2. ADALAT CC [Concomitant]
     Route: 048
  3. BASEN OD [Concomitant]
     Route: 048
     Dates: end: 20110130
  4. AMOBAN [Concomitant]
     Route: 048
  5. GLYBURIDE [Concomitant]
     Route: 048
  6. EBRANTIL [Concomitant]
     Route: 048
     Dates: start: 20090101, end: 20110413
  7. UBRETID [Concomitant]
     Route: 048
     Dates: start: 20090101, end: 20110413
  8. JANUVIA [Suspect]
     Indication: DIABETES MELLITUS
     Route: 048
     Dates: start: 20110131, end: 20110323
  9. FLOMOX [Suspect]
     Indication: CYSTITIS
     Route: 048
     Dates: start: 20110315, end: 20110321
  10. DOXAZOSIN MESYLATE [Concomitant]
     Route: 065
  11. PROSTAL [Concomitant]
     Route: 048
     Dates: start: 20090101, end: 20110413

REACTIONS (5)
  - RASH GENERALISED [None]
  - BACTERIAL TEST POSITIVE [None]
  - SEPSIS [None]
  - DEPRESSED LEVEL OF CONSCIOUSNESS [None]
  - DISSEMINATED INTRAVASCULAR COAGULATION [None]
